FAERS Safety Report 8289993-2 (Version None)
Quarter: 2012Q2

REPORT INFORMATION
  Report Type: 
  Country: None (occurrence: None)
  Receive Date: 20120417
  Receipt Date: 20120411
  Transmission Date: 20120825
  Serious: No
  Sender: FDA-Public Use
  Company Number: US-PFIZER INC-2012090961

PATIENT
  Sex: Female

DRUGS (4)
  1. DOXEPIN HYDROCHLORIDE [Suspect]
     Dosage: UNK
  2. EFFEXOR [Suspect]
     Dosage: UNK
  3. DEPAKOTE [Suspect]
     Dosage: UNK
  4. DESIPRAMINE HCL [Suspect]
     Dosage: UNK

REACTIONS (4)
  - EYE PRURITUS [None]
  - DRUG INEFFECTIVE [None]
  - VISUAL IMPAIRMENT [None]
  - CONSTIPATION [None]
